FAERS Safety Report 24406161 (Version 3)
Quarter: 2024Q4

REPORT INFORMATION
  Report Type: Spontaneous
  Country: US (occurrence: US)
  Receive Date: 20241007
  Receipt Date: 20241211
  Transmission Date: 20250115
  Serious: Yes (Other)
  Sender: PFIZER
  Company Number: US-PFIZER INC-PV202400128657

PATIENT
  Age: 79 Year
  Sex: Female
  Weight: 75.3 kg

DRUGS (2)
  1. IBRANCE [Suspect]
     Active Substance: PALBOCICLIB
     Indication: Invasive ductal breast carcinoma
     Dosage: DAY 1-21 1Q28 DAYS
     Route: 048
  2. IBRANCE [Suspect]
     Active Substance: PALBOCICLIB
     Indication: Breast cancer recurrent
     Dosage: ADMINISTER ON DAYS 1 THROUGH 21 OF A 28 DAY TREATMENT CYCLE
     Route: 048
     Dates: start: 20240927

REACTIONS (5)
  - Cytopenia [Unknown]
  - Renal failure [Recovered/Resolved]
  - Neutropenia [Unknown]
  - Rash [Unknown]
  - Musculoskeletal chest pain [Unknown]
